FAERS Safety Report 8537194-2 (Version None)
Quarter: 2012Q3

REPORT INFORMATION
  Report Type: 
  Country: None (occurrence: None)
  Receive Date: 20120725
  Receipt Date: 20120717
  Transmission Date: 20120928
  Serious: Yes (Hospitalization, Other)
  Sender: FDA-Public Use
  Company Number: US-ASTRAZENECA-2012SE43383

PATIENT
  Age: 43 Year
  Sex: Female
  Weight: 90.7 kg

DRUGS (6)
  1. PAXIL [Concomitant]
     Indication: DEPRESSION
     Dosage: EVERY MORNING
  2. XANAX [Concomitant]
     Indication: DEPRESSION
     Dosage: PRN
  3. CLONAZEPAM [Concomitant]
     Indication: DEPRESSION
     Dosage: HS
  4. SEROQUEL XR [Suspect]
     Indication: BIPOLAR DISORDER
     Route: 048
  5. OXYCODONE HCL [Concomitant]
     Indication: PAIN
     Dosage: PRN
  6. SEROQUEL XR [Suspect]
     Indication: MAJOR DEPRESSION
     Route: 048

REACTIONS (14)
  - DEHYDRATION [None]
  - RHABDOMYOLYSIS [None]
  - CLOSTRIDIAL INFECTION [None]
  - CONVULSION [None]
  - VOMITING [None]
  - FEELING ABNORMAL [None]
  - VIRAL INFECTION [None]
  - BLOOD PRESSURE DECREASED [None]
  - MALAISE [None]
  - ANKLE FRACTURE [None]
  - PNEUMONIA [None]
  - ADVERSE EVENT [None]
  - GASTRIC DISORDER [None]
  - BLOOD GLUCOSE INCREASED [None]
